FAERS Safety Report 5636515-8 (Version None)
Quarter: 2008Q1

REPORT INFORMATION
  Report Type: 
  Country: None (occurrence: None)
  Receive Date: 20080219
  Receipt Date: 20080219
  Transmission Date: 20080703
  Serious: No
  Sender: FDA-Public Use
  Company Number: None

PATIENT
  Age: 37 Year
  Sex: Female
  Weight: 58.9676 kg

DRUGS (3)
  1. ZOLPIDEM [Suspect]
     Indication: DEPRESSION
     Dosage: 5MG QUOT PO
     Route: 048
     Dates: start: 20071201, end: 20080229
  2. ZOLPIDEM [Suspect]
     Indication: INSOMNIA
     Dosage: 5MG QUOT PO
     Route: 048
     Dates: start: 20071201, end: 20080229
  3. EFFEXOR XR [Concomitant]

REACTIONS (5)
  - ARTHRALGIA [None]
  - MIDDLE INSOMNIA [None]
  - PAIN IN EXTREMITY [None]
  - RESTLESSNESS [None]
  - SOMNOLENCE [None]
